FAERS Safety Report 9067293 (Version 1)
Quarter: 2013Q1

REPORT INFORMATION
  Report Type: Spontaneous
  Country: FR (occurrence: FR)
  Receive Date: 20130201
  Receipt Date: 20130201
  Transmission Date: 20140127
  Serious: Yes (Other)
  Sender: FDA-Public Use
  Company Number: FR-GALDERMA-FR13000283

PATIENT
  Sex: 0

DRUGS (2)
  1. DIFFERIN [Suspect]
     Indication: KERATOSIS FOLLICULAR
     Dosage: 0.1%
     Dates: start: 201111, end: 201211
  2. SORIATANE [Suspect]
     Dates: start: 201111

REACTIONS (2)
  - Hepatitis [Not Recovered/Not Resolved]
  - Off label use [Not Recovered/Not Resolved]
